FAERS Safety Report 9373891 (Version 1)
Quarter: 2013Q2

REPORT INFORMATION
  Report Type: Spontaneous
  Country: AU (occurrence: AU)
  Receive Date: 20130628
  Receipt Date: 20130628
  Transmission Date: 20140414
  Serious: Yes (Hospitalization)
  Sender: FDA-Public Use
  Company Number: AU-B.I. PHARMACEUTICALS,INC./RIDGEFIELD-2013-AU-00762AU

PATIENT
  Age: 94 Year
  Sex: Male

DRUGS (7)
  1. PRADAXA [Suspect]
     Indication: ATRIAL FIBRILLATION
     Dosage: 220 MG
     Dates: start: 201106, end: 201304
  2. ACTONEL [Concomitant]
  3. METOPROLOL [Concomitant]
  4. PERINDOPRIL [Concomitant]
  5. INDAPAMIDE [Concomitant]
  6. VALSARTAN [Concomitant]
  7. XALATAN [Concomitant]

REACTIONS (1)
  - Encephalitis viral [Recovered/Resolved]
